FAERS Safety Report 20653988 (Version 1)
Quarter: 2022Q1

REPORT INFORMATION
  Report Type: Spontaneous
  Country: RU (occurrence: RU)
  Receive Date: 20220330
  Receipt Date: 20220330
  Transmission Date: 20220423
  Serious: Yes (Hospitalization)
  Sender: FDA-Public Use
  Company Number: RU-ALLERGAN-2209974US

PATIENT
  Sex: Male
  Weight: 78 kg

DRUGS (6)
  1. BOTOX [Suspect]
     Active Substance: ONABOTULINUMTOXINA
     Indication: Muscle spasticity
     Dosage: UNK, SINGLE
     Dates: start: 20220319, end: 20220319
  2. BOTOX [Suspect]
     Active Substance: ONABOTULINUMTOXINA
     Dosage: UNK, SINGLE
     Dates: start: 20220320, end: 20220320
  3. ATORVASTATIN [Concomitant]
     Active Substance: ATORVASTATIN
     Indication: Cerebrovascular accident
     Dosage: 40 MG, QD
     Dates: start: 20220317
  4. ASPIRIN [Concomitant]
     Active Substance: ASPIRIN
     Indication: Cerebrovascular accident
     Dosage: 100 MG, QD
     Route: 048
     Dates: start: 20220317
  5. GLYCINE [Concomitant]
     Active Substance: GLYCINE
     Indication: Cerebrovascular accident
     Dosage: 100 MG, TID
     Dates: start: 20220317
  6. OMEPRAZOLE [Concomitant]
     Active Substance: OMEPRAZOLE
     Indication: Cerebrovascular accident
     Route: 048
     Dates: start: 20220317

REACTIONS (2)
  - Hyperthermia [Recovering/Resolving]
  - COVID-19 [Unknown]

NARRATIVE: CASE EVENT DATE: 20220322
